FAERS Safety Report 5455920-6 (Version None)
Quarter: 2007Q3

REPORT INFORMATION
  Report Type: 
  Country: None (occurrence: None)
  Receive Date: 20070918
  Receipt Date: 20070228
  Transmission Date: 20080115
  Serious: No
  Sender: FDA-Public Use
  Company Number: US-ASTRAZENECA-2006UW24276

PATIENT
  Age: 14633 Day
  Sex: Female
  Weight: 98.6 kg

DRUGS (4)
  1. SEROQUEL [Suspect]
     Indication: HALLUCINATION
     Dosage: 25 MG TO 100 MG
     Route: 048
     Dates: start: 20041117, end: 20051014
  2. ZOLOFT [Concomitant]
  3. TRAZODONE HCL [Concomitant]
  4. ABILIFY [Concomitant]

REACTIONS (7)
  - BLOOD CHOLESTEROL INCREASED [None]
  - DIABETES MELLITUS [None]
  - DYSKINESIA [None]
  - LIVER DISORDER [None]
  - MUSCLE SPASMS [None]
  - VISION BLURRED [None]
  - WEIGHT INCREASED [None]
